FAERS Safety Report 7248480-0 (Version None)
Quarter: 2011Q1

REPORT INFORMATION
  Report Type: 
  Country: None (occurrence: None)
  Receive Date: 20110127
  Receipt Date: 20110117
  Transmission Date: 20110831
  Serious: Yes (Hospitalization, Other)
  Sender: FDA-Public Use
  Company Number: DE-TYCO HEALTHCARE/MALLINCKRODT-T201100114

PATIENT
  Sex: Female

DRUGS (4)
  1. ZOPICLONE [Suspect]
     Dosage: 750 MG, 1 IN 1 TOTAL
     Route: 048
     Dates: start: 20110114, end: 20110114
  2. LORAZEPAM [Suspect]
     Dosage: 50 MG, 1 IN 1 TOTAL
     Route: 048
     Dates: start: 20110114, end: 20110114
  3. EXALGO [Suspect]
     Dosage: 9600 MG, 1 IN 1 TOTAL
     Route: 048
     Dates: start: 20110114, end: 20110114
  4. ETHANOL [Suspect]
     Dosage: UNK

REACTIONS (7)
  - SLUGGISHNESS [None]
  - ABDOMINAL PAIN [None]
  - SUICIDE ATTEMPT [None]
  - HYPERHIDROSIS [None]
  - MULTIPLE DRUG OVERDOSE [None]
  - DISORIENTATION [None]
  - BACK PAIN [None]
